FAERS Safety Report 19453538 (Version 1)
Quarter: 2021Q2

REPORT INFORMATION
  Report Type: Spontaneous
  Country: CA (occurrence: CA)
  Receive Date: 20210623
  Receipt Date: 20210623
  Transmission Date: 20210717
  Serious: Yes (Other)
  Sender: FDA-Public Use
  Company Number: CA-PFIZER INC-2021684208

PATIENT
  Age: 56 Year
  Sex: Female
  Weight: 56 kg

DRUGS (3)
  1. ZIRABEV [Suspect]
     Active Substance: BEVACIZUMAB-BVZR
     Dosage: 900 MG Q 3 WEEKS (800 MG)
     Route: 042
     Dates: start: 20210608
  2. ZIRABEV [Suspect]
     Active Substance: BEVACIZUMAB-BVZR
     Dosage: 900 MG Q 3 WEEKS
     Route: 042
     Dates: start: 20210223
  3. ZIRABEV [Suspect]
     Active Substance: BEVACIZUMAB-BVZR
     Dosage: 900 MG Q 3 WEEKS (100 MG)
     Route: 042
     Dates: start: 20210608

REACTIONS (3)
  - Inflammation [Unknown]
  - Heart rate decreased [Unknown]
  - Hemiparesis [Unknown]

NARRATIVE: CASE EVENT DATE: 20210608
